FAERS Safety Report 7655902-X (Version None)
Quarter: 2011Q3

REPORT INFORMATION
  Report Type: 
  Country: None (occurrence: None)
  Receive Date: 20110804
  Receipt Date: 20110804
  Transmission Date: 20111222
  Serious: Yes (Other)
  Sender: FDA-Public Use
  Company Number: None

PATIENT
  Age: 66 Year
  Sex: Female
  Weight: 86.182 kg

DRUGS (2)
  1. CELEBREX [Suspect]
     Indication: ARTHRITIS
     Dosage: 200 MG
     Route: 048
     Dates: start: 20110115, end: 20110210
  2. NAPROXEN [Concomitant]
     Indication: ARTHRITIS
     Dosage: 500 MG
     Route: 048
     Dates: start: 20110725, end: 20110801

REACTIONS (1)
  - VAGINAL HAEMORRHAGE [None]
